FAERS Safety Report 19803963 (Version 3)
Quarter: 2022Q2

REPORT INFORMATION
  Report Type: Spontaneous
  Country: US (occurrence: US)
  Receive Date: 20210908
  Receipt Date: 20220614
  Transmission Date: 20220720
  Serious: Yes (Other)
  Sender: FDA-Public Use
  Company Number: US-PFM-2021-05009

PATIENT
  Age: 0 Year
  Sex: Male
  Weight: 8 kg

DRUGS (4)
  1. HEMANGEOL [Suspect]
     Active Substance: PROPRANOLOL HYDROCHLORIDE
     Indication: Haemangioma
     Dosage: TAKE 1.5ML BY MOUTH 2 TIMES DAILY WITH FOOD AS DIRECTED
     Route: 048
     Dates: start: 20210111
  2. HEMANGEOL [Suspect]
     Active Substance: PROPRANOLOL HYDROCHLORIDE
     Dosage: 2.6ML TWICE DAILY
     Route: 065
  3. HEMANGEOL [Suspect]
     Active Substance: PROPRANOLOL HYDROCHLORIDE
     Dosage: 2.8ML TWICE DAILY
     Route: 065
  4. HEMANGEOL [Suspect]
     Active Substance: PROPRANOLOL HYDROCHLORIDE
     Dosage: 3.2 ML, BID (2/DAY)
     Route: 048

REACTIONS (9)
  - Haematochezia [Unknown]
  - Skin discolouration [Unknown]
  - Frequent bowel movements [Unknown]
  - Gastrointestinal disorder [Unknown]
  - Nasal congestion [Not Recovered/Not Resolved]
  - Pyrexia [Not Recovered/Not Resolved]
  - Diarrhoea [Unknown]
  - Irritability [Unknown]
  - Cough [Not Recovered/Not Resolved]

NARRATIVE: CASE EVENT DATE: 20210203
